FAERS Safety Report 9857520 (Version 1)
Quarter: 2014Q1

REPORT INFORMATION
  Report Type: Spontaneous
  Country: ES (occurrence: ES)
  Receive Date: 20140131
  Receipt Date: 20140131
  Transmission Date: 20141002
  Serious: Yes (Other)
  Sender: FDA-Public Use
  Company Number: PHHY2014ES009814

PATIENT
  Sex: 0

DRUGS (3)
  1. CICLOSPORIN [Suspect]
     Route: 064
  2. PREDNISONE [Suspect]
     Route: 064
  3. AZATHIOPRINE [Suspect]

REACTIONS (4)
  - Premature baby [Unknown]
  - Low birth weight baby [Unknown]
  - Hypertrichosis [Unknown]
  - Foetal exposure during pregnancy [Unknown]
